FAERS Safety Report 4720752-0 (Version None)
Quarter: 2005Q3

REPORT INFORMATION
  Report Type: 
  Country: None (occurrence: None)
  Receive Date: 20050719
  Receipt Date: 20050705
  Transmission Date: 20060218
  Serious: Yes (Hospitalization)
  Sender: FDA-Public Use
  Company Number: HQWYE819611MAY04

PATIENT
  Age: 60 Year
  Sex: Male
  Weight: 74 kg

DRUGS (13)
  1. MYLOTARG [Suspect]
     Indication: ACUTE MYELOID LEUKAEMIA
     Dosage: 9 MG/M^2 1X PER 1 DAY, INTRAVENOUS
     Route: 042
     Dates: start: 20031003, end: 20031003
  2. MYLOTARG [Suspect]
     Indication: ACUTE MYELOID LEUKAEMIA
     Dosage: 9 MG/M^2 1X PER 1 DAY, INTRAVENOUS
     Route: 042
     Dates: start: 20031017, end: 20031017
  3. ACETAMINOPHEN [Concomitant]
  4. CIPRO [Concomitant]
  5. CARDIZEM [Concomitant]
  6. BENADRYL [Concomitant]
  7. SPORANOX [Concomitant]
  8. PROTONIX [Concomitant]
  9. ZOSYN (PIPERACILLIN/TAZOABACTAM) [Concomitant]
  10. POTASSIUM CHLORIDE [Concomitant]
  11. ACYCLOVIR [Concomitant]
  12. HEPARIN [Concomitant]
  13. VANCOMYCIN [Concomitant]

REACTIONS (7)
  - ALANINE AMINOTRANSFERASE INCREASED [None]
  - ASPARTATE AMINOTRANSFERASE INCREASED [None]
  - BLOOD ALKALINE PHOSPHATASE INCREASED [None]
  - BLOOD BILIRUBIN INCREASED [None]
  - BODY TEMPERATURE INCREASED [None]
  - PANCYTOPENIA [None]
  - PYREXIA [None]
